FAERS Safety Report 4334302-4 (Version None)
Quarter: 2004Q2

REPORT INFORMATION
  Report Type: 
  Country: None (occurrence: None)
  Receive Date: 20040405
  Receipt Date: 20040318
  Transmission Date: 20050107
  Serious: Yes (Hospitalization)
  Sender: FDA-Public Use
  Company Number: 179539

PATIENT
  Age: 56 Year
  Sex: Female
  Weight: 58.9676 kg

DRUGS (11)
  1. AVONEX [Suspect]
     Indication: MULTIPLE SCLEROSIS
     Dosage: 30 MCG QW IM
     Route: 030
     Dates: start: 19960801, end: 20030901
  2. AVONEX [Suspect]
     Indication: MULTIPLE SCLEROSIS
     Dosage: 30 MCG IM
     Route: 030
     Dates: start: 20030910, end: 20030910
  3. AMITRIPTYLINE HCL [Concomitant]
  4. ZOLOFT [Concomitant]
  5. MACRODANTIN [Concomitant]
  6. FOSAMAX [Concomitant]
  7. SINGULAIR [Concomitant]
  8. BACLOFEN [Concomitant]
  9. AZMACORT [Concomitant]
  10. SEREVENT [Concomitant]
  11. NITROFURANTOIN [Concomitant]

REACTIONS (10)
  - AMNESIA [None]
  - ASTHENIA [None]
  - ASTHMA [None]
  - ATAXIA [None]
  - DYSARTHRIA [None]
  - FACIAL PALSY [None]
  - FATIGUE [None]
  - GRAND MAL CONVULSION [None]
  - MULTIPLE SCLEROSIS [None]
  - OPHTHALMOPLEGIA [None]
